FAERS Safety Report 5741203-3 (Version None)
Quarter: 2008Q2

REPORT INFORMATION
  Report Type: 
  Country: None (occurrence: None)
  Receive Date: 20080516
  Receipt Date: 20080508
  Transmission Date: 20081010
  Serious: Yes (Other)
  Sender: FDA-Public Use
  Company Number: US-PFIZER INC-2008040802

PATIENT
  Sex: Female
  Weight: 74.8 kg

DRUGS (3)
  1. CHANTIX [Suspect]
     Indication: SMOKING CESSATION THERAPY
  2. LEVOXYL [Concomitant]
     Indication: THYROID DISORDER
  3. ALL OTHER THERAPEUTIC PRODUCTS [Concomitant]
     Indication: HORMONE REPLACEMENT THERAPY

REACTIONS (6)
  - DYSGEUSIA [None]
  - GINGIVAL BLEEDING [None]
  - GINGIVAL ULCERATION [None]
  - ORAL PAIN [None]
  - SPUTUM DISCOLOURED [None]
  - STOMATITIS [None]
